FAERS Safety Report 24703198 (Version 1)
Quarter: 2024Q4

REPORT INFORMATION
  Report Type: Spontaneous
  Country: SI (occurrence: SI)
  Receive Date: 20241205
  Receipt Date: 20241205
  Transmission Date: 20250115
  Serious: Yes (Other)
  Sender: SANDOZ
  Company Number: None

PATIENT
  Age: 75 Year
  Sex: Female

DRUGS (11)
  1. ACETAMINOPHEN [Suspect]
     Active Substance: ACETAMINOPHEN
     Indication: Ear inflammation
     Dosage: 1X1, IN PRINCIPLE UP TO 3X/DAY 1 TABLET, BUT THE PATIENT ALSO EXCEEDED THE DOSE - IN CASE OF SEVERE
     Route: 048
     Dates: start: 20241022
  2. FENOTEROL HYDROBROMIDE\IPRATROPIUM BROMIDE [Concomitant]
     Active Substance: FENOTEROL HYDROBROMIDE\IPRATROPIUM BROMIDE
     Indication: Chronic obstructive pulmonary disease
     Dosage: STRENGHT: 0,05 MG/0,02 MGDOSE: IF NECESSARY,LONG-TERM THERAPY,SOLUTION FOR INHALATION
     Route: 055
  3. CARDURA XL [Concomitant]
     Active Substance: DOXAZOSIN MESYLATE
     Indication: Hypertension
     Dosage: LONG-TERM THERAPY
     Route: 048
  4. BISOPROLOL FUMARATE [Concomitant]
     Active Substance: BISOPROLOL FUMARATE
     Indication: Hypertension
     Dosage: 1X1 LONG-TERM THERAPY
     Route: 048
  5. BROMAZEPAM [Concomitant]
     Active Substance: BROMAZEPAM
     Indication: Insomnia
     Dosage: 1X1 IF NECESSARY
     Route: 048
  6. HYDROCHLOROTHIAZIDE\LOSARTAN POTASSIUM [Concomitant]
     Active Substance: HYDROCHLOROTHIAZIDE\LOSARTAN POTASSIUM
     Indication: Hypertension
     Dosage: STRENGHT: 50 MG/12,5 MGDOSE: 1X1, LONG-TERM THERAPY
     Route: 048
  7. PLAVIX [Concomitant]
     Active Substance: CLOPIDOGREL BISULFATE
     Indication: Supraventricular tachycardia
     Dosage: 1X1, LONG-TERM THERAPY
     Route: 048
  8. TRIMETAZIDINE DIHYDROCHLORIDE [Concomitant]
     Active Substance: TRIMETAZIDINE DIHYDROCHLORIDE
     Indication: Coronary artery disease
     Dosage: 2X1, MODIFIED-RELEASE FILM-COATED TABLET NUMBER OF UNITS IN THE INTERVAL 2 DAY
     Route: 048
  9. SERETIDE [Concomitant]
     Active Substance: FLUTICASONE PROPIONATE\SALMETEROL XINAFOATE
     Indication: Dyspnoea
     Dosage: STRENGHT: 25 MICROGRAMS/250 MICROGRAMS/INHALATIONDOSE: 2X 1 INHALATION,LONG-TERM THERAPY
     Route: 055
  10. SPIRIVA RESPIMAT [Concomitant]
     Active Substance: TIOTROPIUM BROMIDE
     Indication: Coronary artery disease
     Dosage: 1X/DAY 2 INHALATION, LONG-TERM THERAP SOLUTION FOR INHALATION
     Route: 055
  11. INDAPAMIDE [Concomitant]
     Active Substance: INDAPAMIDE
     Indication: Hypertension
     Dosage: 1 TBL IN THE MORNING
     Route: 048

REACTIONS (3)
  - Hepatic enzyme increased [Recovering/Resolving]
  - Intentional overdose [Recovering/Resolving]
  - Medication error [Recovering/Resolving]

NARRATIVE: CASE EVENT DATE: 20241120
